FAERS Safety Report 9192709 (Version 2)
Quarter: 2013Q3

REPORT INFORMATION
  Report Type: Spontaneous
  Country: US (occurrence: None)
  Receive Date: 20130325
  Receipt Date: 20130730
  Transmission Date: 20140515
  Serious: Yes (Hospitalization)
  Sender: FDA-Public Use
  Company Number: 146782

PATIENT
  Age: 37 Year
  Sex: Female
  Weight: 75 kg

DRUGS (1)
  1. LEUCOVORIN CALCIUM FOR INJ. 50MG - BEDFORD LABS, INC. [Suspect]
     Dosage: 1 EVERY 14 DAYS
     Route: 042
     Dates: start: 20120829

REACTIONS (9)
  - Chest pain [None]
  - Chills [None]
  - Headache [None]
  - Malaise [None]
  - Abdominal pain [None]
  - Blood sodium decreased [None]
  - Gastrooesophageal reflux disease [None]
  - Urinary tract infection [None]
  - Haemoglobin decreased [None]
